FAERS Safety Report 24646914 (Version 1)
Quarter: 2024Q4

REPORT INFORMATION
  Report Type: Spontaneous
  Country: IT (occurrence: IT)
  Receive Date: 20241121
  Receipt Date: 20241121
  Transmission Date: 20250115
  Serious: Yes (Hospitalization)
  Sender: RANBAXY
  Company Number: IT-SUN PHARMACEUTICAL INDUSTRIES LTD-2024RR-479561

PATIENT
  Age: 78 Year
  Sex: Female
  Weight: 63 kg

DRUGS (3)
  1. GEMCITABINE [Suspect]
     Active Substance: GEMCITABINE
     Indication: Ovarian cancer
     Dosage: 1000 MILLIGRAM, UNK
     Route: 040
     Dates: start: 20231115, end: 20240813
  2. VEGZELMA [Concomitant]
     Active Substance: BEVACIZUMAB-ADCD
     Indication: Ovarian cancer
     Dosage: BEVACIZUMAB 15MG/M2 EVERY 3 WEEKS
     Route: 065
     Dates: start: 20231115, end: 20240813
  3. CARBOPLATIN [Concomitant]
     Active Substance: CARBOPLATIN
     Indication: Ovarian cancer
     Dosage: CARBOPLATIN AUC4 EVERY 3 WEEKS
     Route: 040
     Dates: start: 20231115, end: 20240214

REACTIONS (1)
  - Thrombotic microangiopathy [Recovering/Resolving]

NARRATIVE: CASE EVENT DATE: 20240821
